FAERS Safety Report 4341630-5 (Version None)
Quarter: 2004Q2

REPORT INFORMATION
  Report Type: 
  Country: None (occurrence: None)
  Receive Date: 20040419
  Receipt Date: 20040419
  Transmission Date: 20050107
  Serious: Yes (Other)
  Sender: FDA-Public Use
  Company Number: None

PATIENT
  Age: 50 Year
  Sex: Male
  Weight: 79.3795 kg

DRUGS (1)
  1. EQUATE COLD AND FLU WALMART [Suspect]
     Indication: COUGH
     Dosage: ONE THREE HOUR ORAL
     Route: 048
     Dates: start: 20040412, end: 20040412

REACTIONS (3)
  - DRUG ABUSER [None]
  - PHARMACEUTICAL PRODUCT COMPLAINT [None]
  - TOXICOLOGIC TEST ABNORMAL [None]
